FAERS Safety Report 16183784 (Version 3)
Quarter: 2019Q2

REPORT INFORMATION
  Report Type: Spontaneous
  Country: CH (occurrence: CH)
  Receive Date: 20190411
  Receipt Date: 20190513
  Transmission Date: 20190711
  Serious: Yes (Death, Hospitalization, Other)
  Sender: FDA-Public Use
  Company Number: CH-ACTELION-A-CH2019-188686

PATIENT
  Age: 68 Year
  Sex: Male

DRUGS (2)
  1. OPSUMIT [Suspect]
     Active Substance: MACITENTAN
     Indication: PULMONARY HYPERTENSION
     Dosage: UNK
     Route: 048
  2. OXYGEN. [Concomitant]
     Active Substance: OXYGEN
     Indication: CHRONIC OBSTRUCTIVE PULMONARY DISEASE

REACTIONS (10)
  - Colectomy [Unknown]
  - Pulmonary hypertension [Fatal]
  - Pulmonary embolism [Unknown]
  - Adenocarcinoma of colon [Unknown]
  - Hypercapnia [Unknown]
  - Loss of consciousness [Unknown]
  - Disease progression [Fatal]
  - Large intestinal stenosis [Unknown]
  - Right ventricular failure [Fatal]
  - Device issue [Unknown]

NARRATIVE: CASE EVENT DATE: 20190326
